FAERS Safety Report 11212898 (Version 1)
Quarter: 2015Q2

REPORT INFORMATION
  Report Type: Spontaneous
  Country: US (occurrence: None)
  Receive Date: 20150622
  Receipt Date: 20150622
  Transmission Date: 20150821
  Serious: Yes (Other)
  Sender: FDA-Public Use
  Company Number: None

PATIENT
  Age: 36 Year
  Sex: Female
  Weight: 68.04 kg

DRUGS (1)
  1. ADACEL TDAP [Suspect]
     Active Substance: TETANUS TOXOID, REDUCED DIPHTHERIA TOXOID AND ACELLULAR PERTUSSIS VACCINE ADSORBED, TDAP
     Indication: IMMUNISATION
     Route: 030
     Dates: start: 20150529

REACTIONS (4)
  - Pain of skin [None]
  - Pyrexia [None]
  - Pain in extremity [None]
  - Fatigue [None]

NARRATIVE: CASE EVENT DATE: 20150529
